FAERS Safety Report 9591003 (Version 1)
Quarter: 2013Q4

REPORT INFORMATION
  Report Type: Spontaneous
  Country: US (occurrence: US)
  Receive Date: 20131003
  Receipt Date: 20131003
  Transmission Date: 20140711
  Serious: No
  Sender: FDA-Public Use
  Company Number: US-AMGEN-USASP2012079542

PATIENT
  Age: 47 Year
  Sex: Female

DRUGS (3)
  1. ENBREL [Suspect]
     Indication: RHEUMATOID ARTHRITIS
     Dosage: 50 MG, QWK
     Dates: start: 20121129
  2. AZULFIDINE [Concomitant]
     Dosage: UNK
     Dates: start: 2006
  3. METHOTREXATE [Concomitant]
     Dosage: 2.5 MG, QD
     Dates: start: 201202

REACTIONS (4)
  - Epistaxis [Recovered/Resolved]
  - Haemorrhage [Not Recovered/Not Resolved]
  - Injection site bruising [Not Recovered/Not Resolved]
  - Injection site pain [Not Recovered/Not Resolved]
